FAERS Safety Report 8588163-8 (Version None)
Quarter: 2012Q3

REPORT INFORMATION
  Report Type: 
  Country: None (occurrence: None)
  Receive Date: 20120731
  Receipt Date: 20120719
  Transmission Date: 20120928
  Serious: Yes (Hospitalization, Other)
  Sender: FDA-Public Use
  Company Number: UTC-021221

PATIENT
  Age: 35 Year
  Sex: Female

DRUGS (2)
  1. REMODULIN [Suspect]
     Indication: COR PULMONALE CHRONIC
     Dosage: 51.84 UG/KG (0.036 UG/KG, 1 IN 1 MIN), INTRAVENOUS
     Route: 042
     Dates: start: 20071217
  2. FUROSEMIDE [Concomitant]

REACTIONS (7)
  - PREGNANCY [None]
  - PYREXIA [None]
  - MATERNAL EXPOSURE DURING PREGNANCY [None]
  - CHEST PAIN [None]
  - DYSPNOEA [None]
  - DEVICE RELATED INFECTION [None]
  - CHILLS [None]
